FAERS Safety Report 25832630 (Version 1)
Quarter: 2025Q3

REPORT INFORMATION
  Report Type: Spontaneous
  Country: US (occurrence: None)
  Receive Date: 20250922
  Receipt Date: 20250922
  Transmission Date: 20251020
  Serious: Yes (Other)
  Sender: FDA-CTU
  Company Number: None

PATIENT
  Sex: Female

DRUGS (1)
  1. NUCALA [Suspect]
     Active Substance: MEPOLIZUMAB
     Indication: Asthma
     Dosage: OTHER QUANTITY : 1 PEN (100 MG) ;?FREQUENCY : MONTHLY;?
     Route: 058
     Dates: start: 20250307

REACTIONS (1)
  - Drug effect less than expected [None]
